FAERS Safety Report 16006432 (Version 1)
Quarter: 2019Q1

REPORT INFORMATION
  Report Type: Spontaneous
  Country: US (occurrence: US)
  Receive Date: 20190225
  Receipt Date: 20190225
  Transmission Date: 20190418
  Serious: No
  Sender: FDA-Public Use
  Company Number: US-PFIZER INC-2016385039

PATIENT
  Age: 69 Year
  Sex: Female
  Weight: 55.78 kg

DRUGS (3)
  1. NITROSTAT [Suspect]
     Active Substance: NITROGLYCERIN
     Indication: ANGINA UNSTABLE
     Dosage: UNK
  2. DICYCLOMINE [Concomitant]
     Active Substance: DICYCLOMINE HYDROCHLORIDE
     Dosage: UNK
  3. NITROSTAT [Suspect]
     Active Substance: NITROGLYCERIN
     Indication: CARDIOMYOPATHY
     Dosage: 0.4 MG, 1X/DAY
     Route: 060

REACTIONS (6)
  - Expired product administered [Unknown]
  - Intentional product misuse [Unknown]
  - Malaise [Unknown]
  - Sensation of blood flow [Unknown]
  - Chest pain [Unknown]
  - Gait disturbance [Unknown]

NARRATIVE: CASE EVENT DATE: 201902
